FAERS Safety Report 14741410 (Version 1)
Quarter: 2018Q2

REPORT INFORMATION
  Report Type: Spontaneous
  Country: MX (occurrence: MX)
  Receive Date: 20180410
  Receipt Date: 20180410
  Transmission Date: 20180711
  Serious: Yes (Other)
  Sender: FDA-Public Use
  Company Number: MX-GLAXOSMITHKLINE-MX2018GSK059927

PATIENT
  Age: 56 Year
  Sex: Male
  Weight: 75 kg

DRUGS (2)
  1. RELVARE [Suspect]
     Active Substance: FLUTICASONE FUROATE\VILANTEROL TRIFENATATE
     Indication: ASTHMATIC CRISIS
     Dosage: UNK UNK, Z
     Route: 055
     Dates: start: 20180331, end: 20180331
  2. RELVARE [Suspect]
     Active Substance: FLUTICASONE FUROATE\VILANTEROL TRIFENATATE
     Indication: ASTHMA

REACTIONS (15)
  - Tremor [Recovered/Resolved]
  - Insomnia [Recovered/Resolved]
  - Hypersensitivity [Recovered/Resolved]
  - Hyperhidrosis [Recovered/Resolved]
  - Salivary hypersecretion [Recovered/Resolved]
  - Feeling abnormal [Unknown]
  - Pharyngeal disorder [Recovered/Resolved]
  - Therapy cessation [Not Recovered/Not Resolved]
  - Off label use [Recovered/Resolved]
  - Overdose [Recovered/Resolved]
  - Paralysis [Unknown]
  - Dyspnoea [Unknown]
  - Tracheal disorder [Recovered/Resolved]
  - Pharyngeal hypoaesthesia [Recovered/Resolved]
  - Dysphagia [Recovered/Resolved]

NARRATIVE: CASE EVENT DATE: 20180331
